FAERS Safety Report 4444662-1 (Version None)
Quarter: 2004Q3

REPORT INFORMATION
  Report Type: 
  Country: None (occurrence: None)
  Receive Date: 20040907
  Receipt Date: 20040819
  Transmission Date: 20050211
  Serious: Yes (Hospitalization, Other)
  Sender: FDA-Public Use
  Company Number: PHFR2004GB03062

PATIENT
  Age: 87 Year
  Sex: Female

DRUGS (4)
  1. VISUDYNE [Suspect]
     Indication: MACULAR DEGENERATION
     Dosage: 9.6 MG DAILY IV
     Route: 042
     Dates: start: 20040720, end: 20040720
  2. ARTHROTEC [Concomitant]
  3. ASPIRIN [Concomitant]
  4. NITROGLYCERIN [Concomitant]

REACTIONS (4)
  - NECROSIS ISCHAEMIC [None]
  - SKIN GRAFT [None]
  - SKIN NECROSIS [None]
  - SUNBURN [None]
